FAERS Safety Report 4947372-7 (Version None)
Quarter: 2006Q1

REPORT INFORMATION
  Report Type: 
  Country: None (occurrence: None)
  Receive Date: 20060317
  Receipt Date: 20051207
  Transmission Date: 20060701
  Serious: Yes (Hospitalization)
  Sender: FDA-Public Use
  Company Number: US-MERCK-0512USA01372

PATIENT
  Age: 68 Year
  Sex: Female
  Weight: 77 kg

DRUGS (12)
  1. VIOXX [Suspect]
     Indication: OSTEOARTHRITIS
     Route: 048
     Dates: start: 20000425, end: 20040930
  2. TYLENOL (CAPLET) [Concomitant]
     Route: 065
  3. OS-CAL [Concomitant]
     Route: 048
  4. COZAAR [Concomitant]
     Route: 048
  5. VITA C [Concomitant]
     Route: 048
  6. THERAGRAN-M [Concomitant]
     Route: 048
  7. PREMARIN [Concomitant]
     Route: 048
  8. PEPCID [Concomitant]
     Route: 048
  9. LOPRESSOR [Concomitant]
     Route: 048
  10. COLACE [Concomitant]
     Route: 048
  11. SENOKOT [Concomitant]
     Route: 048
  12. ZOSYN [Concomitant]
     Route: 042

REACTIONS (11)
  - ANAEMIA POSTOPERATIVE [None]
  - ANEURYSM [None]
  - ARTERIOVENOUS FISTULA [None]
  - ARTHROPATHY [None]
  - CORONARY ARTERY DISEASE [None]
  - DYSLIPIDAEMIA [None]
  - HYPERGLYCAEMIA [None]
  - HYPERTENSION [None]
  - MYOCARDIAL INFARCTION [None]
  - PLEURAL EFFUSION [None]
  - SUPRAVENTRICULAR EXTRASYSTOLES [None]
